FAERS Safety Report 8922297 (Version 1)
Quarter: 2012Q4

REPORT INFORMATION
  Report Type: 
  Country: GB (occurrence: GB)
  Receive Date: 20121123
  Receipt Date: 20121123
  Transmission Date: 20130627
  Serious: Yes (Hospitalization)
  Sender: FDA-Public Use
  Company Number: GB-JNJFOC-20121107856

PATIENT
  Sex: Male

DRUGS (2)
  1. XEPLION [Suspect]
     Indication: SCHIZOPHRENIA
     Route: 030
  2. XEPLION [Suspect]
     Indication: SCHIZOPHRENIA
     Route: 030

REACTIONS (3)
  - Akathisia [Unknown]
  - Intentional drug misuse [Unknown]
  - Hospitalisation [Unknown]
